FAERS Safety Report 5278231-0 (Version None)
Quarter: 2007Q1

REPORT INFORMATION
  Report Type: 
  Country: None (occurrence: None)
  Receive Date: 20070328
  Receipt Date: 20070315
  Transmission Date: 20070707
  Serious: Yes (Hospitalization, Other)
  Sender: FDA-Public Use
  Company Number: US-ELI_LILLY_AND_COMPANY-US200701004362

PATIENT
  Age: 47 Year
  Sex: Female
  Weight: 61.678 kg

DRUGS (3)
  1. ZYPREXA [Suspect]
     Dates: start: 20020101, end: 20030101
  2. LITHIUM CARBONATE [Concomitant]
     Route: 048
     Dates: start: 20010101
  3. TAFENOQUINE [Concomitant]
     Route: 048
     Dates: start: 20040101

REACTIONS (6)
  - DIABETES MELLITUS [None]
  - HYPERGLYCAEMIA [None]
  - HYPERTENSION [None]
  - INFECTION [None]
  - METABOLIC DISORDER [None]
  - PANCREATITIS [None]
